FAERS Safety Report 6188046-7 (Version None)
Quarter: 2009Q2

REPORT INFORMATION
  Report Type: 
  Country: None (occurrence: None)
  Receive Date: 20090513
  Receipt Date: 20090507
  Transmission Date: 20091009
  Serious: Yes (Other)
  Sender: FDA-Public Use
  Company Number: BE-ASTRAZENECA-2009AC01127

PATIENT
  Sex: Male

DRUGS (4)
  1. TENORETIC MITIS [Suspect]
     Route: 048
     Dates: start: 20010101
  2. TENORETIC MITIS [Suspect]
     Dosage: EVENTS STARTED AFTER STARTING THIS NEW BATCH
     Route: 048
  3. TENORETIC MITIS [Suspect]
     Dosage: EVENTS STARTED AFTER STARTING THIS NEW BATCH
     Route: 048
  4. CEDACID [Concomitant]
     Indication: ILL-DEFINED DISORDER
     Dates: start: 20080101

REACTIONS (4)
  - BLOOD PRESSURE INCREASED [None]
  - HEADACHE [None]
  - MALAISE [None]
  - MICTURITION DISORDER [None]
